FAERS Safety Report 7005538-9 (Version None)
Quarter: 2010Q3

REPORT INFORMATION
  Report Type: 
  Country: None (occurrence: None)
  Receive Date: 20100902
  Receipt Date: 20100608
  Transmission Date: 20110219
  Serious: Yes (Other)
  Sender: FDA-Public Use
  Company Number: 237160USA

PATIENT
  Sex: Male

DRUGS (1)
  1. METOCLOPRAMIDE [Suspect]
     Dates: start: 19941101, end: 20081201

REACTIONS (6)
  - DYSKINESIA [None]
  - DYSTONIA [None]
  - PARKINSON'S DISEASE [None]
  - TARDIVE DYSKINESIA [None]
  - TEMPOROMANDIBULAR JOINT SYNDROME [None]
  - TREMOR [None]
